FAERS Safety Report 5006785-8 (Version None)
Quarter: 2006Q2

REPORT INFORMATION
  Report Type: 
  Country: None (occurrence: None)
  Receive Date: 20060519
  Receipt Date: 20060426
  Transmission Date: 20061013
  Serious: Yes (Other)
  Sender: FDA-Public Use
  Company Number: PHBS2006JP06311

PATIENT
  Age: 55 Year
  Sex: Male

DRUGS (6)
  1. CYCLOSPORINE [Suspect]
     Indication: UVEITIS
     Dosage: 300 MG/D
     Route: 065
     Dates: start: 19950701
  2. CYCLOSPORINE [Suspect]
     Dosage: 150 MG/DAY
     Route: 065
  3. CYCLOSPORINE [Suspect]
     Dosage: 75 MG/DAY
     Route: 065
     Dates: start: 20041001
  4. PREDNISOLONE [Concomitant]
     Dosage: 20 MG/D
     Route: 065
     Dates: start: 19960701
  5. PREDNISOLONE [Concomitant]
     Dosage: 80 MG/D
     Route: 065
     Dates: start: 20041001
  6. PREDNISOLONE [Concomitant]
     Dosage: 14 MG/D
     Route: 065

REACTIONS (9)
  - BEHCET'S SYNDROME [None]
  - CRANIAL NERVE DISORDER [None]
  - DYSARTHRIA [None]
  - GAIT DISTURBANCE [None]
  - HEADACHE [None]
  - MENINGITIS [None]
  - NERVOUS SYSTEM DISORDER [None]
  - NUCLEAR MAGNETIC RESONANCE IMAGING BRAIN ABNORMAL [None]
  - PYREXIA [None]
